FAERS Safety Report 9775147 (Version 1)
Quarter: 2013Q4

REPORT INFORMATION
  Report Type: Spontaneous
  Country: US (occurrence: None)
  Receive Date: 20131219
  Receipt Date: 20131219
  Transmission Date: 20140711
  Serious: Yes (Other)
  Sender: FDA-Public Use
  Company Number: None

PATIENT
  Age: 8 Month
  Sex: Female
  Weight: 56.7 kg

DRUGS (1)
  1. VENLAFAXINE HCL [Suspect]
     Indication: DEPRESSION
     Dosage: 1 CAPSULE DAILY ONCE DAILY TAKEN BY MOUTH
     Route: 048
     Dates: start: 20131213, end: 20131218

REACTIONS (1)
  - Drug withdrawal syndrome [None]
